FAERS Safety Report 22241701 (Version 2)
Quarter: 2023Q2

REPORT INFORMATION
  Report Type: Report from Study
  Country: US (occurrence: US)
  Receive Date: 20230421
  Receipt Date: 20230426
  Transmission Date: 20230722
  Serious: Yes (Other)
  Sender: FDA-Public Use
  Company Number: US-002147023-NVSC2023US087288

PATIENT
  Sex: Female

DRUGS (16)
  1. DICLOFENAC [Suspect]
     Active Substance: DICLOFENAC
     Indication: Psoriasis
     Dosage: 1 %
     Route: 061
  2. CLONAZEPAM [Interacting]
     Active Substance: CLONAZEPAM
     Indication: Psoriasis
     Dosage: 0.5 MG
     Route: 048
  3. BETAMETHASONE DIPROPIONATE [Suspect]
     Active Substance: BETAMETHASONE DIPROPIONATE
     Indication: Psoriasis
     Dosage: 0.05 %
     Route: 061
  4. CLOBETASOL PROPIONATE [Suspect]
     Active Substance: CLOBETASOL PROPIONATE
     Indication: Psoriasis
     Dosage: 0.05 %
     Route: 061
  5. NYSTATIN [Suspect]
     Active Substance: NYSTATIN
     Indication: Psoriasis
     Dosage: UNK
     Route: 061
  6. ALBUTEROL SULFATE [Suspect]
     Active Substance: ALBUTEROL SULFATE
     Indication: Psoriasis
     Dosage: 90 UG
  7. FLUTICASONE [Suspect]
     Active Substance: FLUTICASONE
     Indication: Psoriasis
     Dosage: 50 UG
  8. RIZATRIPTAN [Suspect]
     Active Substance: RIZATRIPTAN
     Indication: Psoriasis
     Dosage: 10 MG
     Route: 048
  9. DEXLANSOPRAZOLE [Suspect]
     Active Substance: DEXLANSOPRAZOLE
     Indication: Psoriasis
     Dosage: 60 MG
     Route: 048
  10. PRAZOSIN [Suspect]
     Active Substance: PRAZOSIN
     Indication: Psoriasis
     Dosage: 1 MG
     Route: 048
  11. IRON [Suspect]
     Active Substance: IRON
     Indication: Psoriasis
     Dosage: 143 MG (SLOW RELEASE IRON)
     Route: 048
  12. LISINOPRIL [Suspect]
     Active Substance: LISINOPRIL
     Indication: Psoriasis
     Dosage: 20 MG
     Route: 048
  13. TRAZODONE [Suspect]
     Active Substance: TRAZODONE HYDROCHLORIDE
     Indication: Psoriasis
     Dosage: 100 MG
     Route: 048
  14. VENLAFAXINE [Suspect]
     Active Substance: VENLAFAXINE HYDROCHLORIDE
     Indication: Psoriasis
     Dosage: 150 MG (EXTENDED RELEASE CAPSULES)
     Route: 048
  15. CELEBREX [Suspect]
     Active Substance: CELECOXIB
     Indication: Product used for unknown indication
     Dosage: UNK
     Route: 065
  16. METHOTREXATE [Concomitant]
     Active Substance: METHOTREXATE
     Indication: Product used for unknown indication
     Dosage: UNK
     Route: 065

REACTIONS (20)
  - Impaired gastric emptying [Unknown]
  - Psoriatic arthropathy [Unknown]
  - Arthralgia [Unknown]
  - COVID-19 [Unknown]
  - Dry skin [Unknown]
  - Hidradenitis [Unknown]
  - Fistula [Unknown]
  - Rheumatoid factor positive [Unknown]
  - Gastrooesophageal reflux disease [Unknown]
  - Migraine [Unknown]
  - Macule [Unknown]
  - Drug interaction [Unknown]
  - Psoriasis [Unknown]
  - Rash pruritic [Unknown]
  - Skin exfoliation [Unknown]
  - Pain [Unknown]
  - Pruritus [Unknown]
  - Contraindicated product administered [Unknown]
  - Product use in unapproved indication [Unknown]
  - Drug ineffective [Unknown]
